FAERS Safety Report 5293369-X (Version None)
Quarter: 2007Q1

REPORT INFORMATION
  Report Type: 
  Country: None (occurrence: None)
  Receive Date: 20070116
  Receipt Date: 20060419
  Transmission Date: 20070707
  Serious: Yes (Other)
  Sender: FDA-Public Use
  Company Number: HQWYE817304AUG04

PATIENT
  Age: 59 Year
  Sex: Female
  Weight: 68.1 kg

DRUGS (4)
  1. PREMPRO [Suspect]
     Indication: MENOPAUSE
     Dosage: 0.625MG/2.5MG
     Dates: start: 19960101, end: 20010101
  2. PREMARIN [Suspect]
     Dosage: 06.25MG
     Dates: start: 19890101, end: 19960101
  3. PROVERA [Suspect]
     Dates: start: 19890101, end: 19960101
  4. SYNTHROID [Concomitant]

REACTIONS (1)
  - BREAST CANCER [None]
